FAERS Safety Report 10183268 (Version 1)
Quarter: 2014Q2

REPORT INFORMATION
  Report Type: Spontaneous
  Country: IE (occurrence: IE)
  Receive Date: 20140520
  Receipt Date: 20140520
  Transmission Date: 20141212
  Serious: Yes (Hospitalization)
  Sender: FDA-Public Use
  Company Number: IE-ASTELLAS-2014EU005335

PATIENT
  Age: 89 Year
  Sex: Female

DRUGS (3)
  1. BETMIGA [Suspect]
     Indication: HYPERTONIC BLADDER
     Route: 048
     Dates: start: 201403, end: 20140403
  2. AMLODIPINE [Concomitant]
     Indication: HYPERTENSION
     Dosage: UNK UNK, UNKNOWN FREQ.
     Route: 065
  3. ATACAND [Concomitant]
     Indication: HYPERTENSION
     Dosage: UNK UNK, UNKNOWN FREQ.
     Route: 065

REACTIONS (1)
  - Cardiac failure congestive [Unknown]
